FAERS Safety Report 23645803 (Version 1)
Quarter: 2024Q1

REPORT INFORMATION
  Report Type: Spontaneous
  Country: US (occurrence: US)
  Receive Date: 20240319
  Receipt Date: 20240319
  Transmission Date: 20240410
  Serious: No
  Sender: FDA-Public Use
  Company Number: US-ESPERIONTHERAPEUTICS-2023USA00634

PATIENT
  Sex: Female

DRUGS (6)
  1. NEXLIZET [Suspect]
     Active Substance: BEMPEDOIC ACID\EZETIMIBE
     Indication: Blood cholesterol increased
     Dosage: 1 DOSAGE FORM (180/10MG), QD
     Route: 048
     Dates: start: 2023, end: 20230616
  2. NEXLIZET [Suspect]
     Active Substance: BEMPEDOIC ACID\EZETIMIBE
     Indication: Drug intolerance
  3. LEVOTHYROXINE [Concomitant]
     Active Substance: LEVOTHYROXINE\LEVOTHYROXINE SODIUM
     Indication: Product used for unknown indication
     Dosage: UNK
     Route: 065
  4. IBUPROFEN [Concomitant]
     Active Substance: IBUPROFEN
     Indication: Product used for unknown indication
     Dosage: UNK
     Route: 065
  5. CALCIUM [Concomitant]
     Active Substance: CALCIUM
     Dosage: UNK
     Route: 065
  6. VITAMIN D NOS [Concomitant]
     Active Substance: VITAMIN D NOS
     Dosage: UNK
     Route: 065

REACTIONS (4)
  - Arthropathy [Not Recovered/Not Resolved]
  - Gait inability [Not Recovered/Not Resolved]
  - Arthralgia [Not Recovered/Not Resolved]
  - Tendonitis [Not Recovered/Not Resolved]

NARRATIVE: CASE EVENT DATE: 20230101
